FAERS Safety Report 19484145 (Version 1)
Quarter: 2021Q3

REPORT INFORMATION
  Report Type: Spontaneous
  Country: LT (occurrence: LT)
  Receive Date: 20210701
  Receipt Date: 20210701
  Transmission Date: 20211014
  Serious: Yes (Life-Threatening, Hospitalization)
  Sender: FDA-Public Use
  Company Number: LT-TEVA-2021-LT-1926424

PATIENT
  Age: 63 Year
  Sex: Female
  Weight: 80 kg

DRUGS (2)
  1. AMANTADINE. [Suspect]
     Active Substance: AMANTADINE HYDROCHLORIDE
     Indication: SUICIDE ATTEMPT
     Route: 048
     Dates: start: 20210531, end: 20210531
  2. BACLOFEN. [Suspect]
     Active Substance: BACLOFEN
     Indication: SUICIDE ATTEMPT
     Route: 048
     Dates: start: 20210531, end: 20210531

REACTIONS (1)
  - Agitation [Recovered/Resolved]

NARRATIVE: CASE EVENT DATE: 20210531
